FAERS Safety Report 23889076 (Version 1)
Quarter: 2024Q2

REPORT INFORMATION
  Report Type: Spontaneous
  Country: CH (occurrence: CH)
  Receive Date: 20240523
  Receipt Date: 20240523
  Transmission Date: 20240716
  Serious: Yes (Hospitalization)
  Sender: FDA-Public Use
  Company Number: None

PATIENT
  Age: 78 Year
  Sex: Male

DRUGS (7)
  1. CAPECITABINE [Suspect]
     Active Substance: CAPECITABINE
     Indication: Gastrinoma malignant
     Dosage: TIME INTERVAL: CYCLICAL: CAPECITABINE TEVA  2X 750 MG/M2: D1-14, TEMOZOLOMID (200MG/M2: D10-14) Q...
     Route: 048
     Dates: start: 20240328
  2. CAPECITABINE [Suspect]
     Active Substance: CAPECITABINE
     Indication: Gastrinoma malignant
     Dosage: TIME INTERVAL: CYCLICAL: CAPECITABINE TEVA  2X 750 MG/M2: D1-14, TEMOZOLOMID (200MG/M2: D10-14) Q...
     Route: 048
     Dates: start: 20240112, end: 20240125
  3. OCTREOTIDE [Suspect]
     Active Substance: OCTREOTIDE\OCTREOTIDE ACETATE
     Indication: Gastrinoma malignant
     Route: 030
     Dates: start: 20240404
  4. ALLOPURINOL [Concomitant]
     Active Substance: ALLOPURINOL
     Indication: Gout
     Route: 048
  5. KALIUMKLORID [Concomitant]
     Indication: Mineral supplementation
     Route: 048
     Dates: start: 20240220
  6. TEMOZOLOMIDE [Concomitant]
     Active Substance: TEMOZOLOMIDE
     Indication: Gastrinoma malignant
     Dosage: TIME INTERVAL: CYCLICAL: CAPECITABINE TEVA  2X 750 MG/M2: D1-14, TEMOZOLOMID (200MG/M2: D10-14) Q...
     Route: 048
     Dates: start: 20240121, end: 20240125
  7. PANTOPRAZOLE SODIUM [Concomitant]
     Active Substance: PANTOPRAZOLE SODIUM
     Indication: Gastrooesophageal reflux prophylaxis
     Route: 048

REACTIONS (3)
  - Pancreatitis acute [Recovering/Resolving]
  - Hyperglycaemia [Not Recovered/Not Resolved]
  - Diarrhoea [Recovering/Resolving]

NARRATIVE: CASE EVENT DATE: 20240401
